FAERS Safety Report 16161706 (Version 1)
Quarter: 2019Q2

REPORT INFORMATION
  Report Type: Spontaneous
  Country: US (occurrence: US)
  Receive Date: 20190405
  Receipt Date: 20190405
  Transmission Date: 20190711
  Serious: No
  Sender: FDA-Public Use
  Company Number: US-PFIZER INC-2019135660

PATIENT
  Sex: Male

DRUGS (2)
  1. LINEZOLID. [Suspect]
     Active Substance: LINEZOLID
     Indication: SKIN DISCOLOURATION
     Dosage: 600 MG, 2X/DAY
     Dates: end: 20190327
  2. LINEZOLID. [Suspect]
     Active Substance: LINEZOLID
     Indication: CELLULITIS

REACTIONS (2)
  - Drug ineffective for unapproved indication [Unknown]
  - Therapeutic response unexpected [Unknown]
